FAERS Safety Report 8247362-5 (Version None)
Quarter: 2012Q1

REPORT INFORMATION
  Report Type: 
  Country: None (occurrence: None)
  Receive Date: 20120328
  Receipt Date: 20120328
  Transmission Date: 20120608
  Serious: No
  Sender: FDA-Public Use
  Company Number: None

PATIENT
  Age: 63 Year
  Sex: Male

DRUGS (2)
  1. SIMVASTATIN [Suspect]
     Dates: start: 20100511, end: 20100817
  2. DICLOFENAC GEL [Suspect]
     Dates: start: 20100511, end: 20100827

REACTIONS (3)
  - AUTOIMMUNE HEPATITIS [None]
  - CHOLELITHIASIS [None]
  - HEPATIC FIBROSIS [None]
